FAERS Safety Report 9164421 (Version 1)
Quarter: 2013Q1

REPORT INFORMATION
  Report Type: Spontaneous
  Country: GB (occurrence: GB)
  Receive Date: 20130315
  Receipt Date: 20130315
  Transmission Date: 20140127
  Serious: Yes (Other)
  Sender: FDA-Public Use
  Company Number: GB-JNJFOC-20130303540

PATIENT
  Sex: Male

DRUGS (8)
  1. XARELTO [Suspect]
     Indication: KNEE ARTHROPLASTY
     Route: 065
  2. XARELTO [Suspect]
     Indication: THROMBOSIS PROPHYLAXIS
     Route: 065
  3. AMLODIPINE [Concomitant]
     Route: 065
  4. RAMIPRIL [Concomitant]
     Route: 065
  5. FUROSEMIDE [Concomitant]
     Route: 065
  6. OMEPRAZOLE [Concomitant]
     Route: 065
  7. ALLOPURINOL [Concomitant]
     Route: 065
  8. FERROUS FUMARATE [Concomitant]
     Route: 065

REACTIONS (3)
  - Coagulopathy [Unknown]
  - Hypovolaemia [Unknown]
  - Haemorrhage [Unknown]
